FAERS Safety Report 25207254 (Version 1)
Quarter: 2025Q2

REPORT INFORMATION
  Report Type: Spontaneous
  Country: GB (occurrence: GB)
  Receive Date: 20250417
  Receipt Date: 20250417
  Transmission Date: 20250717
  Serious: Yes (Other)
  Sender: RANBAXY
  Company Number: GB-SUN PHARMACEUTICAL INDUSTRIES LTD-2025RR-504304

PATIENT
  Age: 35 Year
  Sex: Female
  Weight: 210 kg

DRUGS (2)
  1. OLANZAPINE [Suspect]
     Active Substance: OLANZAPINE
     Indication: Mood swings
     Route: 065
     Dates: start: 20250331
  2. CLONIDINE [Suspect]
     Active Substance: CLONIDINE
     Indication: Irritability
     Route: 065
     Dates: start: 20250331, end: 20250404

REACTIONS (1)
  - Peripheral swelling [Not Recovered/Not Resolved]

NARRATIVE: CASE EVENT DATE: 20250404
